FAERS Safety Report 17146734 (Version 1)
Quarter: 2019Q4

REPORT INFORMATION
  Report Type: Spontaneous
  Country: BE (occurrence: BE)
  Receive Date: 20191212
  Receipt Date: 20191212
  Transmission Date: 20200122
  Serious: Yes (Other)
  Sender: FDA-Public Use
  Company Number: NVSC2019BE063462

PATIENT
  Age: 54 Year
  Sex: Male

DRUGS (1)
  1. PANTOPRAZOL [Suspect]
     Active Substance: PANTOPRAZOLE SODIUM
     Indication: PRODUCT USED FOR UNKNOWN INDICATION
     Dosage: 160 MG, QD (80 MILLIGRAM, BID)
     Route: 065

REACTIONS (4)
  - Paraesthesia oral [Unknown]
  - Hypomagnesaemia [Recovered/Resolved]
  - Myalgia [Unknown]
  - Vomiting [Unknown]
